FAERS Safety Report 10518346 (Version 1)
Quarter: 2014Q4

REPORT INFORMATION
  Report Type: Spontaneous
  Country: US (occurrence: US)
  Receive Date: 20141015
  Receipt Date: 20141015
  Transmission Date: 20150528
  Serious: Yes (Hospitalization)
  Sender: FDA-Public Use
  Company Number: US-BEH-2014045522

PATIENT
  Age: 64 Year
  Sex: Female
  Weight: 70 kg

DRUGS (38)
  1. HIZENTRA [Suspect]
     Active Substance: HUMAN IMMUNOGLOBULIN G
     Indication: IMMUNODEFICIENCY
     Route: 058
  2. BENTYL [Concomitant]
     Active Substance: DICYCLOMINE HYDROCHLORIDE
  3. LIDOCAINE. [Concomitant]
     Active Substance: LIDOCAINE
  4. PREDNISONE. [Concomitant]
     Active Substance: PREDNISONE
  5. SPIRIVA [Concomitant]
     Active Substance: TIOTROPIUM BROMIDE MONOHYDRATE
  6. NITROFURANTOIN. [Concomitant]
     Active Substance: NITROFURANTOIN
  7. CETIRIZINE [Concomitant]
     Active Substance: CETIRIZINE HYDROCHLORIDE
  8. CYANOCOBALAMIN. [Concomitant]
     Active Substance: CYANOCOBALAMIN
  9. PROAIR HFA [Concomitant]
     Active Substance: ALBUTEROL SULFATE
  10. ESTRACE [Concomitant]
     Active Substance: ESTRADIOL
  11. ACETAMINOPHEN CODEINE #3 [Concomitant]
  12. SEROQUEL [Concomitant]
     Active Substance: QUETIAPINE FUMARATE
  13. HIZENTRA [Suspect]
     Active Substance: HUMAN IMMUNOGLOBULIN G
     Indication: IMMUNODEFICIENCY
     Route: 058
  14. AMITRIPTYLINE [Concomitant]
     Active Substance: AMITRIPTYLINE
  15. DIPHENHYDRAMINE [Concomitant]
     Active Substance: DIPHENHYDRAMINE
  16. NYSTATIN. [Concomitant]
     Active Substance: NYSTATIN
  17. SYMBICORT [Concomitant]
     Active Substance: BUDESONIDE\FORMOTEROL FUMARATE DIHYDRATE
  18. FISH OIL [Concomitant]
     Active Substance: FISH OIL
  19. ZANTAC [Concomitant]
     Active Substance: RANITIDINE HYDROCHLORIDE
  20. FLONASE [Concomitant]
     Active Substance: FLUTICASONE PROPIONATE
  21. THERACRAN [Concomitant]
  22. MUCINEX COLD [Concomitant]
  23. AMOXICILLIN. [Concomitant]
     Active Substance: AMOXICILLIN
  24. FOLIC ACID. [Concomitant]
     Active Substance: FOLIC ACID
  25. FLU SHOT [Concomitant]
     Active Substance: INFLUENZA VIRUS VACCINE
  26. PROBIOTIC [Concomitant]
     Active Substance: PROBIOTICS NOS
  27. COZAAR [Concomitant]
     Active Substance: LOSARTAN POTASSIUM
  28. DUONEB [Concomitant]
     Active Substance: ALBUTEROL SULFATE\IPRATROPIUM BROMIDE
  29. EPIPEN [Concomitant]
     Active Substance: EPINEPHRINE
  30. HYDROXYZINE [Concomitant]
     Active Substance: HYDROXYZINE\HYDROXYZINE HYDROCHLORIDE
  31. SINGULAIR [Concomitant]
     Active Substance: MONTELUKAST SODIUM
  32. OMEPRAZOLE. [Concomitant]
     Active Substance: OMEPRAZOLE
  33. METAMUCIL [Concomitant]
     Active Substance: PLANTAGO SEED
  34. ACETAMINOPHEN. [Concomitant]
     Active Substance: ACETAMINOPHEN
  35. CYSTEX [Concomitant]
  36. CRESTOR [Concomitant]
     Active Substance: ROSUVASTATIN CALCIUM
  37. PRELIEF [Concomitant]
     Active Substance: CALCIUM GLYCEROPHOSPHATE
  38. ALL OTHER THERAPEUTIC PRODUCTS [Concomitant]
     Active Substance: UNSPECIFIED INGREDIENT

REACTIONS (4)
  - Dehydration [Unknown]
  - Back pain [Unknown]
  - Nausea [Unknown]
  - Upper respiratory tract infection [Unknown]

NARRATIVE: CASE EVENT DATE: 201409
